FAERS Safety Report 21954704 (Version 2)
Quarter: 2023Q1

REPORT INFORMATION
  Report Type: Report from Study
  Country: CN (occurrence: CN)
  Receive Date: 20230205
  Receipt Date: 20230213
  Transmission Date: 20230417
  Serious: Yes (Death)
  Sender: FDA-Public Use
  Company Number: CN-BAYER-2023A011746

PATIENT
  Age: 75 Year
  Sex: Male
  Weight: 71 kg

DRUGS (19)
  1. RIVAROXABAN [Suspect]
     Active Substance: RIVAROXABAN
     Indication: Coronary artery disease
     Dosage: 2.5 MG, BID
     Route: 048
     Dates: start: 20220509, end: 20221023
  2. RIVAROXABAN [Suspect]
     Active Substance: RIVAROXABAN
     Indication: Coronary artery disease
     Dosage: 2.5 MG, BID
     Route: 048
     Dates: start: 20221101, end: 202212
  3. ASPIRIN [Suspect]
     Active Substance: ASPIRIN
     Indication: Coronary artery disease
     Dosage: 100 MG, QD
     Route: 048
     Dates: start: 202104, end: 202212
  4. CLOPIDOGREL [Concomitant]
     Active Substance: CLOPIDOGREL BISULFATE
     Dosage: UNK UNK, QD
     Dates: start: 202104, end: 20220505
  5. CLOPIDOGREL [Concomitant]
     Active Substance: CLOPIDOGREL BISULFATE
     Dosage: UNK, QD
     Dates: start: 20220620, end: 20220802
  6. FUROSEMIDE [Concomitant]
     Active Substance: FUROSEMIDE
     Dosage: 20 MG, QD
     Dates: start: 202104, end: 20230103
  7. SPIRONOLACTONE [Concomitant]
     Active Substance: SPIRONOLACTONE
     Dosage: 20 MG, QD
     Dates: start: 202104, end: 20230103
  8. AMLODIPINE [Concomitant]
     Active Substance: AMLODIPINE BESYLATE
     Dosage: 5 MG, QD
     Dates: start: 2001, end: 202109
  9. SACUBITRIL\VALSARTAN [Concomitant]
     Active Substance: SACUBITRIL\VALSARTAN
     Dosage: 25 MG, BID
     Dates: start: 202109, end: 20230103
  10. EZETIMIBE [Concomitant]
     Active Substance: EZETIMIBE
     Dosage: 10 MG, QD
     Dates: start: 202105, end: 20221207
  11. ATORVASTATIN CALCIUM [Concomitant]
     Active Substance: ATORVASTATIN CALCIUM
     Dosage: 20 MG, QD
     Dates: start: 202104, end: 20230103
  12. METOPROLOL [Concomitant]
     Active Substance: METOPROLOL
     Dosage: 23.75 MG, QD
     Dates: start: 202104, end: 20230103
  13. HERBALS [Concomitant]
     Active Substance: HERBALS
     Dosage: 45 MG, TID
     Dates: start: 202104, end: 20230103
  14. SHE XIANG ZHEN TONG [Concomitant]
     Dosage: 1 DF
     Dates: start: 20221115, end: 202212
  15. LIU WEI DI HUANG [Concomitant]
     Dosage: 3 DF
     Dates: start: 20221115, end: 202212
  16. METHYLCOBALAMIN [Concomitant]
     Active Substance: METHYLCOBALAMIN
     Dosage: 0.5 MG, TID
     Dates: start: 20221208, end: 202212
  17. CELECOXIB [Concomitant]
     Active Substance: CELECOXIB
     Dosage: 0.2 G, QD
     Dates: start: 20221208, end: 202212
  18. HYBUTIMIBE [Concomitant]
     Dosage: 10 MG, QD
     Dates: start: 20221208, end: 20230103
  19. EPINEPHRINE HYDROCHLORIDE [Concomitant]
     Active Substance: EPINEPHRINE HYDROCHLORIDE
     Dosage: 1 ML, QID
     Dates: start: 20230104, end: 20230104

REACTIONS (1)
  - Sudden cardiac death [Fatal]

NARRATIVE: CASE EVENT DATE: 20230104
